FAERS Safety Report 9050654 (Version 1)
Quarter: 2013Q1

REPORT INFORMATION
  Report Type: Spontaneous
  Country: KR (occurrence: KR)
  Receive Date: 20130205
  Receipt Date: 20130205
  Transmission Date: 20140127
  Serious: Yes (Death, Hospitalization)
  Sender: FDA-Public Use
  Company Number: KR-WATSON-2013-01467

PATIENT
  Age: 66 Year
  Sex: Female

DRUGS (3)
  1. PREDNISOLONE (UNKNOWN) [Suspect]
     Indication: RHEUMATOID ARTHRITIS
     Dosage: 10 MG, DAILY
     Route: 065
  2. METHOTREXATE [Suspect]
     Indication: RHEUMATOID ARTHRITIS
     Dosage: 17.5 MG, 1/WEEK
     Route: 065
  3. ADALIMUMAB [Suspect]
     Indication: RHEUMATOID ARTHRITIS
     Dosage: 40 MG, UNKNOWN
     Route: 065

REACTIONS (8)
  - Herpes zoster [Fatal]
  - Angiopathy [Fatal]
  - Encephalitis viral [Fatal]
  - Viral rash [Fatal]
  - Sepsis [Fatal]
  - Pneumonia klebsiella [Fatal]
  - Renal abscess [Fatal]
  - Enterobacter bacteraemia [Fatal]
